FAERS Safety Report 7384984-8 (Version None)
Quarter: 2011Q1

REPORT INFORMATION
  Report Type: 
  Country: None (occurrence: None)
  Receive Date: 20110323
  Receipt Date: 20110308
  Transmission Date: 20110831
  Serious: Yes (Other)
  Sender: FDA-Public Use
  Company Number: AUR-APL-2011-00636

PATIENT
  Age: 53 Year
  Sex: Female

DRUGS (1)
  1. CEFUROXIME [Suspect]
     Indication: EAR INFECTION
     Dosage: 500MG, BID, ORAL
     Route: 048
     Dates: start: 20110217, end: 20110222

REACTIONS (13)
  - VOMITING [None]
  - CHOKING [None]
  - PRODUCT ODOUR ABNORMAL [None]
  - PRODUCT COATING ISSUE [None]
  - FOREIGN BODY [None]
  - RETCHING [None]
  - DYSPHONIA [None]
  - PRODUCT SUBSTITUTION ISSUE [None]
  - PRODUCT MEASURED POTENCY ISSUE [None]
  - SINUSITIS [None]
  - DRUG INEFFECTIVE [None]
  - BURNING SENSATION [None]
  - PRODUCT TASTE ABNORMAL [None]
